FAERS Safety Report 25147251 (Version 2)
Quarter: 2025Q2

REPORT INFORMATION
  Report Type: Spontaneous
  Country: JP (occurrence: JP)
  Receive Date: 20250401
  Receipt Date: 20250409
  Transmission Date: 20250716
  Serious: Yes (Hospitalization)
  Sender: JOHNSON AND JOHNSON
  Company Number: JP-JNJFOC-20250402149

PATIENT
  Age: 27 Year
  Sex: Male

DRUGS (1)
  1. CONCERTA [Suspect]
     Active Substance: METHYLPHENIDATE HYDROCHLORIDE
     Indication: Product used for unknown indication
     Dosage: AFTER BREAKFAST
     Route: 048

REACTIONS (4)
  - Infectious pleural effusion [Recovering/Resolving]
  - Coronavirus infection [Recovering/Resolving]
  - Pyrexia [Recovering/Resolving]
  - Product dispensing error [Recovered/Resolved]

NARRATIVE: CASE EVENT DATE: 20250301
